FAERS Safety Report 18486344 (Version 1)
Quarter: 2020Q4

REPORT INFORMATION
  Report Type: Spontaneous
  Country: IT (occurrence: IT)
  Receive Date: 20201110
  Receipt Date: 20201110
  Transmission Date: 20210114
  Serious: Yes (Hospitalization)
  Sender: FDA-Public Use
  Company Number: NVSC2020IT294235

PATIENT
  Age: 20 Year
  Sex: Female

DRUGS (9)
  1. DEURSIL [Concomitant]
     Active Substance: URSODIOL
     Indication: PRODUCT USED FOR UNKNOWN INDICATION
     Dosage: 300 MG, QD
     Route: 048
  2. OMEPRAZOLE. [Concomitant]
     Active Substance: OMEPRAZOLE
     Indication: PRODUCT USED FOR UNKNOWN INDICATION
     Dosage: 40 MG
     Route: 065
  3. METHOTREXATE. [Suspect]
     Active Substance: METHOTREXATE
     Indication: LUMBAR PUNCTURE
     Dosage: 12 MG, CYCLIC
     Route: 037
     Dates: start: 20200924, end: 20201016
  4. ACICLOVIR [Concomitant]
     Active Substance: ACYCLOVIR
     Indication: PRODUCT USED FOR UNKNOWN INDICATION
     Dosage: 1200 MG, QD
     Route: 048
  5. ARACYTIN [Concomitant]
     Active Substance: CYTARABINE
     Indication: LUMBAR PUNCTURE
     Dosage: 30 MG
     Route: 037
     Dates: start: 20200924, end: 20201016
  6. URBASON [Concomitant]
     Active Substance: METHYLPREDNISOLONE
     Indication: LUMBAR PUNCTURE
     Dosage: 10 MG
     Route: 037
     Dates: start: 20200924, end: 20201016
  7. POSACONAZOLE [Concomitant]
     Active Substance: POSACONAZOLE
     Indication: PRODUCT USED FOR UNKNOWN INDICATION
     Dosage: 300 MG, QD
     Route: 065
  8. BACTRIM [Concomitant]
     Active Substance: SULFAMETHOXAZOLE\TRIMETHOPRIM
     Indication: PRODUCT USED FOR UNKNOWN INDICATION
     Dosage: 320 MG, QD
     Route: 048
  9. CIPROXIN [Concomitant]
     Active Substance: CIPROFLOXACIN
     Indication: PRODUCT USED FOR UNKNOWN INDICATION
     Dosage: 1000 MG, QD
     Route: 065

REACTIONS (5)
  - Confusional state [Not Recovered/Not Resolved]
  - Coma [Not Recovered/Not Resolved]
  - Headache [Not Recovered/Not Resolved]
  - Vomiting [Not Recovered/Not Resolved]
  - Areflexia [Not Recovered/Not Resolved]

NARRATIVE: CASE EVENT DATE: 20201017
